FAERS Safety Report 9318924 (Version 2)
Quarter: 2013Q2

REPORT INFORMATION
  Report Type: Spontaneous
  Country: FR (occurrence: None)
  Receive Date: 20130520
  Receipt Date: 20130524
  Transmission Date: 20140414
  Serious: Yes (Other)
  Sender: FDA-Public Use
  Company Number: 2013035946

PATIENT
  Age: 56 Year
  Sex: Female

DRUGS (2)
  1. HIZENTRA (IMMUNOGLOBULIN HUMAN NORMAL) [Suspect]
     Indication: SECONDARY IMMUNODEFICIENCY
     Dosage: 15ML, 200 MG/ML
     Route: 058
     Dates: start: 20120706, end: 20120706
  2. TAREG(VALSARTAN) [Concomitant]

REACTIONS (12)
  - Serum sickness-like reaction [None]
  - Arthralgia [None]
  - Hypoaesthesia [None]
  - Muscle spasms [None]
  - Pain in extremity [None]
  - Feeling cold [None]
  - Pyrexia [None]
  - Oropharyngeal pain [None]
  - Cough [None]
  - Fatigue [None]
  - Diarrhoea [None]
  - Pain [None]
